FAERS Safety Report 7734924-4 (Version None)
Quarter: 2011Q3

REPORT INFORMATION
  Report Type: 
  Country: None (occurrence: None)
  Receive Date: 20110907
  Receipt Date: 20110831
  Transmission Date: 20111222
  Serious: Yes (Other)
  Sender: FDA-Public Use
  Company Number: PHEH2011US03005

PATIENT
  Sex: Female

DRUGS (1)
  1. NEORAL [Suspect]
     Dosage: 25 MG, BID
     Route: 048

REACTIONS (2)
  - ABDOMINAL DISTENSION [None]
  - TRAUMATIC RENAL INJURY [None]
